FAERS Safety Report 4887656-4 (Version None)
Quarter: 2006Q1

REPORT INFORMATION
  Report Type: 
  Country: None (occurrence: None)
  Receive Date: 20060119
  Receipt Date: 20060119
  Transmission Date: 20060701
  Serious: Yes (Hospitalization)
  Sender: FDA-Public Use
  Company Number: None

PATIENT
  Age: 58 Year
  Sex: Male

DRUGS (4)
  1. DEXAMETHASONE PO [Suspect]
     Dosage: 40 MG PO X 1
     Route: 048
  2. CYCLOPHOSPHAMIDE [Suspect]
     Dosage: 1200 MG IV X 1
     Route: 042
  3. ETOPOSIDE IV 170 MG X 1 [Suspect]
     Route: 042
  4. CISPLATIN IV 43 MG X 1 [Suspect]
     Route: 042

REACTIONS (8)
  - ANAEMIA [None]
  - ASTHENIA [None]
  - GASTROINTESTINAL PAIN [None]
  - HYPOTENSION [None]
  - NAUSEA [None]
  - ORAL INTAKE REDUCED [None]
  - THROMBOCYTOPENIA [None]
  - VOMITING [None]
